FAERS Safety Report 8591728-0 (Version None)
Quarter: 2012Q3

REPORT INFORMATION
  Report Type: 
  Country: None (occurrence: None)
  Receive Date: 20120814
  Receipt Date: 20120808
  Transmission Date: 20120928
  Serious: Yes (Other)
  Sender: FDA-Public Use
  Company Number: PHEH2012US015623

PATIENT
  Sex: Male

DRUGS (1)
  1. TEGRETOL [Suspect]
     Dosage: 1 DF, BID
     Route: 048

REACTIONS (4)
  - RENAL FAILURE [None]
  - INCORRECT DOSE ADMINISTERED [None]
  - MUSCLE INJURY [None]
  - GAIT DISTURBANCE [None]
